FAERS Safety Report 14813110 (Version 2)
Quarter: 2018Q4

REPORT INFORMATION
  Report Type: Spontaneous
  Country: FR (occurrence: FR)
  Receive Date: 20180426
  Receipt Date: 20181025
  Transmission Date: 20190204
  Serious: Yes (Other)
  Sender: FDA-Public Use
  Company Number: FR-MERCK KGAA-2046552

PATIENT
  Age: 46 Year
  Sex: Female

DRUGS (1)
  1. EUTHYROX [Suspect]
     Active Substance: LEVOTHYROXINE SODIUM
     Indication: PRODUCT USED FOR UNKNOWN INDICATION
     Dates: start: 201706, end: 201710

REACTIONS (13)
  - Angioedema [Not Recovered/Not Resolved]
  - Sleep disorder [None]
  - Mouth swelling [None]
  - Weight increased [None]
  - Loss of personal independence in daily activities [None]
  - Mood altered [None]
  - Eye swelling [None]
  - Face oedema [None]
  - Impaired work ability [None]
  - Headache [Not Recovered/Not Resolved]
  - Marital problem [None]
  - Nervousness [Not Recovered/Not Resolved]
  - Blood thyroid stimulating hormone decreased [Not Recovered/Not Resolved]

NARRATIVE: CASE EVENT DATE: 2017
